FAERS Safety Report 5743996-8 (Version None)
Quarter: 2008Q2

REPORT INFORMATION
  Report Type: 
  Country: None (occurrence: None)
  Receive Date: 20080516
  Receipt Date: 20080516
  Transmission Date: 20081010
  Serious: Yes (Other)
  Sender: FDA-Public Use
  Company Number: None

PATIENT
  Age: 69 Year
  Sex: Male
  Weight: 51.7101 kg

DRUGS (1)
  1. GABAPENTIN 100MG TEVA [Suspect]
     Indication: CONVULSION
     Dosage: 200MG TID PO
     Route: 048

REACTIONS (1)
  - ANAEMIA [None]
